FAERS Safety Report 6323163-X (Version None)
Quarter: 2009Q3

REPORT INFORMATION
  Report Type: 
  Country: None (occurrence: None)
  Receive Date: 20090818
  Receipt Date: 20090130
  Transmission Date: 20100115
  Serious: Yes (Hospitalization)
  Sender: FDA-Public Use
  Company Number: MEDI-0007843

PATIENT
  Age: 2 Month
  Sex: Female

DRUGS (1)
  1. SYNAGIS [Suspect]
     Indication: RESPIRATORY SYNCYTIAL VIRUS INFECTION
     Dates: start: 20081125, end: 20081230

REACTIONS (3)
  - NASAL CONGESTION [None]
  - RESPIRATORY SYNCYTIAL VIRUS BRONCHIOLITIS [None]
  - RHINORRHOEA [None]
